FAERS Safety Report 19181492 (Version 1)
Quarter: 2021Q2

REPORT INFORMATION
  Report Type: Spontaneous
  Country: PL (occurrence: PL)
  Receive Date: 20210426
  Receipt Date: 20210426
  Transmission Date: 20210717
  Serious: Yes (Other)
  Sender: FDA-Public Use
  Company Number: NVSC2021PL088306

PATIENT
  Age: 74 Year
  Sex: Male

DRUGS (6)
  1. FOLINIC ACID [Suspect]
     Active Substance: LEUCOVORIN
     Indication: RECTOSIGMOID CANCER
     Dosage: UNK
     Route: 065
     Dates: start: 201911
  2. 5?FU [Suspect]
     Active Substance: FLUOROURACIL
     Indication: RECTOSIGMOID CANCER
     Dosage: UNK (UNK)
     Route: 065
     Dates: start: 201911
  3. PANITUMUMAB [Suspect]
     Active Substance: PANITUMUMAB
     Indication: RECTOSIGMOID CANCER
     Dosage: UNK (CYCLES TO 21 DAYS)
     Route: 065
  4. PANITUMUMAB [Suspect]
     Active Substance: PANITUMUMAB
     Dosage: UNK (UNK)
     Route: 065
     Dates: start: 201911
  5. OXALIPLATIN. [Suspect]
     Active Substance: OXALIPLATIN
     Indication: RECTOSIGMOID CANCER
     Dosage: UNK
     Route: 065
     Dates: start: 201911
  6. OXALIPLATIN. [Suspect]
     Active Substance: OXALIPLATIN
     Dosage: 65 MG/M2  REDUCED DOSE
     Route: 065

REACTIONS (6)
  - Therapy partial responder [Unknown]
  - Rash [Unknown]
  - Off label use [Unknown]
  - Neuropathy peripheral [Unknown]
  - Neutropenia [Unknown]
  - Skin reaction [Unknown]

NARRATIVE: CASE EVENT DATE: 20200630
